FAERS Safety Report 13078358 (Version 4)
Quarter: 2017Q1

REPORT INFORMATION
  Report Type: Report from Study
  Country: KR (occurrence: KR)
  Receive Date: 20170102
  Receipt Date: 20170210
  Transmission Date: 20170428
  Serious: Yes (Death, Hospitalization)
  Sender: FDA-Public Use
  Company Number: KR-ROCHE-1864074

PATIENT
  Age: 54 Year
  Sex: Female
  Weight: 69 kg

DRUGS (23)
  1. CAROL-F [Concomitant]
     Indication: RHINITIS
     Route: 065
     Dates: start: 20161208, end: 20161210
  2. NORVASC [Concomitant]
     Active Substance: AMLODIPINE BESYLATE
     Indication: HYPERTENSION
     Route: 065
     Dates: start: 20161207
  3. MYPOL (ACETAMINOPHEN/CODEINE PHOSPHATE/IBUPROFEN) [Concomitant]
     Indication: PAIN
     Route: 065
     Dates: start: 20150604
  4. LANSTON [Concomitant]
     Active Substance: LANSOPRAZOLE
     Indication: DYSPEPSIA
     Route: 065
     Dates: start: 20160517
  5. NORZYME [Concomitant]
     Indication: DYSPEPSIA
     Route: 065
     Dates: start: 20161206, end: 20161206
  6. XYZAL [Concomitant]
     Active Substance: LEVOCETIRIZINE DIHYDROCHLORIDE
     Indication: RHINITIS
     Route: 065
     Dates: start: 20150421
  7. K-CONTIN [Concomitant]
     Indication: BLOOD POTASSIUM
     Route: 065
     Dates: start: 20161205, end: 20161208
  8. MUCOSTA [Concomitant]
     Active Substance: REBAMIPIDE
     Indication: DYSPEPSIA
     Route: 065
     Dates: start: 20161210, end: 20161213
  9. ATEZOLIZUMAB [Suspect]
     Active Substance: ATEZOLIZUMAB
     Indication: HER-2 POSITIVE BREAST CANCER
     Dosage: MOST RECENT DOSE PRIOR TO EVENT ONSET: 22/NOV/2016, 13/DEC/2016.
     Route: 042
     Dates: start: 20161122
  10. TAZOPERAN [Concomitant]
     Route: 065
     Dates: start: 20161204, end: 20161210
  11. TRIDOL [Concomitant]
     Active Substance: TRAMADOL HYDROCHLORIDE
     Indication: PAIN
     Route: 065
     Dates: start: 20161206, end: 20161206
  12. APETROL ES [Concomitant]
     Indication: DECREASED APPETITE
     Route: 065
     Dates: start: 20161207, end: 20161213
  13. TRASTUZUMAB EMTANSINE [Suspect]
     Active Substance: ADO-TRASTUZUMAB EMTANSINE
     Indication: HER-2 POSITIVE BREAST CANCER
     Dosage: MOST RECENT DOSE PRIOR TO EVENT ONSET: 22/NOV/2016.?MOST RECENT DOSE 176 MG PRIOR TO SEPSIS WAS ON 1
     Route: 042
     Dates: start: 20161122
  14. TAPOCIN [Concomitant]
     Route: 065
     Dates: start: 20161206, end: 20161209
  15. TANTUM (SOUTH KOREA) [Concomitant]
     Indication: MUCOSAL INFLAMMATION
     Route: 065
     Dates: start: 20161206, end: 20161213
  16. PANORIN [Concomitant]
     Indication: METASTASES TO BONE
     Route: 065
     Dates: start: 20151027
  17. DENOGAN [Concomitant]
     Active Substance: PROPACETAMOL HYDROCHLORIDE
     Indication: PYREXIA
     Route: 065
     Dates: start: 20161204, end: 20161208
  18. SUPRAX (SOUTH KOREA) [Concomitant]
     Indication: PYREXIA
     Route: 065
     Dates: start: 20161210, end: 20161217
  19. NEURONTIN (SOUTH KOREA) [Concomitant]
     Indication: PAIN
     Route: 065
     Dates: start: 20150604
  20. ZINC SULFATE [Concomitant]
     Active Substance: ZINC SULFATE\ZINC SULFATE ANHYDROUS
     Indication: DECREASED APPETITE
     Route: 065
     Dates: start: 20161204, end: 20161208
  21. MACPERAN [Concomitant]
     Active Substance: METOCLOPRAMIDE HYDROCHLORIDE
     Indication: DYSPEPSIA
     Route: 065
     Dates: start: 20161206, end: 20161206
  22. MAGNESIUM OXIDE. [Concomitant]
     Active Substance: MAGNESIUM OXIDE
     Indication: CONSTIPATION
     Route: 065
     Dates: start: 20161208, end: 20161210
  23. TYLENOL [Concomitant]
     Active Substance: ACETAMINOPHEN
     Indication: PYREXIA
     Route: 065
     Dates: start: 20161206, end: 20161217

REACTIONS (2)
  - Histiocytosis haematophagic [Fatal]
  - Osteonecrosis of jaw [Not Recovered/Not Resolved]

NARRATIVE: CASE EVENT DATE: 20161122
